FAERS Safety Report 9304813 (Version 2)
Quarter: 2013Q2

REPORT INFORMATION
  Report Type: Spontaneous
  Country: GB (occurrence: None)
  Receive Date: 20130521
  Receipt Date: 20130522
  Transmission Date: 20140414
  Serious: Yes (Other)
  Sender: FDA-Public Use
  Company Number: THQ2013A03722

PATIENT
  Sex: 0

DRUGS (13)
  1. LANSOPRAZOLE (LANSOPRAZOLE) [Suspect]
  2. CITALOPRAM [Suspect]
     Route: 048
  3. PREDNISOLONE [Concomitant]
  4. MYCOPHENOLATE MOFETIL [Concomitant]
  5. CETIRIZINE [Concomitant]
  6. ACETYLSALICYLIC ACID [Concomitant]
  7. MOVICOL [Concomitant]
  8. DOXAZOSIN [Concomitant]
  9. BISACODYL [Concomitant]
  10. MEBEVERINE [Concomitant]
  11. PEPPERMINT OIL(MENTHA X PIPERITA OIL) [Concomitant]
  12. MINOCYCLINE [Concomitant]
  13. SALBUTAMOL [Concomitant]

REACTIONS (3)
  - Gynaecomastia [None]
  - Hyperprolactinaemia [None]
  - Emotional distress [None]
